FAERS Safety Report 7109096-X (Version None)
Quarter: 2010Q4

REPORT INFORMATION
  Report Type: 
  Country: None (occurrence: None)
  Receive Date: 20101117
  Receipt Date: 20101112
  Transmission Date: 20110411
  Serious: Yes (Other)
  Sender: FDA-Public Use
  Company Number: BR-PFIZER INC-2010142252

PATIENT
  Age: 62 Year
  Sex: Male
  Weight: 78 kg

DRUGS (9)
  1. CHAMPIX [Suspect]
     Indication: SMOKING CESSATION THERAPY
     Dosage: UNK
     Route: 048
     Dates: start: 20101025, end: 20100101
  2. CHAMPIX [Suspect]
     Dosage: 0.5 MG, 2X/DAY
     Route: 048
     Dates: start: 20100101
  3. GLUCOFORMIN [Concomitant]
     Indication: DIABETES MELLITUS
     Dosage: UNK
  4. APROVEL [Concomitant]
     Indication: HYPERTENSION
     Dosage: UNK
  5. DIAMICRON [Concomitant]
     Indication: DIABETES MELLITUS
     Dosage: UNK
  6. FORMOTEROL W/BUDESONIDE [Concomitant]
     Indication: EMPHYSEMA
     Dosage: UNK
  7. BENERVA [Concomitant]
     Dosage: UNK
  8. PASALIX [Concomitant]
     Indication: RELAXATION THERAPY
     Dosage: UNK
  9. SLOW-K [Concomitant]
     Indication: MUSCLE SPASMS
     Dosage: UNK

REACTIONS (3)
  - CAROTID ARTERIOSCLEROSIS [None]
  - DEPRESSION [None]
  - NEUROPATHY PERIPHERAL [None]
